FAERS Safety Report 23562133 (Version 2)
Quarter: 2024Q1

REPORT INFORMATION
  Report Type: Spontaneous
  Country: DE (occurrence: DE)
  Receive Date: 20240226
  Receipt Date: 20240229
  Transmission Date: 20240410
  Serious: Yes (Other)
  Sender: FDA-Public Use
  Company Number: None

PATIENT
  Age: 77 Year
  Sex: Male
  Weight: 71 kg

DRUGS (2)
  1. BEMPEDOIC ACID\EZETIMIBE [Suspect]
     Active Substance: BEMPEDOIC ACID\EZETIMIBE
     Indication: Therapy non-responder
     Dosage: 1 DF, QD (180/10MG)
     Route: 048
     Dates: start: 20231127, end: 20240131
  2. BEMPEDOIC ACID\EZETIMIBE [Suspect]
     Active Substance: BEMPEDOIC ACID\EZETIMIBE
     Indication: Low density lipoprotein increased

REACTIONS (11)
  - Blood pressure increased [Recovered/Resolved]
  - Balance disorder [Recovered/Resolved]
  - Gait disturbance [Recovered/Resolved]
  - Extrasystoles [Recovered/Resolved]
  - Flatulence [Recovered/Resolved]
  - Decreased appetite [Recovered/Resolved]
  - Pruritus [Recovered/Resolved]
  - Mechanical urticaria [Recovered/Resolved]
  - Mechanical urticaria [Recovered/Resolved]
  - Constipation [Recovered/Resolved]
  - Headache [Recovered/Resolved]

NARRATIVE: CASE EVENT DATE: 20240102
